FAERS Safety Report 18274931 (Version 1)
Quarter: 2020Q3

REPORT INFORMATION
  Report Type: Spontaneous
  Country: SK (occurrence: SK)
  Receive Date: 20200917
  Receipt Date: 20200917
  Transmission Date: 20201103
  Serious: Yes (Hospitalization, Other)
  Sender: FDA-Public Use
  Company Number: SK-BAUSCH-BL-2020-026330

PATIENT
  Age: 36 Year
  Sex: Female

DRUGS (2)
  1. DEXAMETHASONE. [Suspect]
     Active Substance: DEXAMETHASONE
     Indication: INFERTILITY FEMALE
     Dosage: 12MG ? 8MG ? 0
     Route: 065
  2. DEXAMETHASONE. [Suspect]
     Active Substance: DEXAMETHASONE
     Indication: IN VITRO FERTILISATION
     Dosage: 8MG ? 8MG ? 0
     Route: 065

REACTIONS (4)
  - Substance-induced psychotic disorder [Recovered/Resolved]
  - Abnormal behaviour [Recovered/Resolved]
  - Psychomotor hyperactivity [Recovered/Resolved]
  - Hyposomnia [Recovered/Resolved]
